FAERS Safety Report 22606356 (Version 1)
Quarter: 2023Q2

REPORT INFORMATION
  Report Type: Spontaneous
  Country: US (occurrence: None)
  Receive Date: 20230614
  Receipt Date: 20230614
  Transmission Date: 20230722
  Serious: No
  Sender: FDA-Public Use
  Company Number: None

PATIENT
  Age: 65 Year
  Sex: Female
  Weight: 49.9 kg

DRUGS (1)
  1. RASUVO [Suspect]
     Active Substance: METHOTREXATE SODIUM
     Indication: Rheumatoid arthritis
     Dosage: INJECT 12.5MG (0.25ML) SUBCUTANEOUSLY  ONCE WEEKLY  ON THE SAME DAY  EACH WEEK  AS DIRECTED
     Route: 058
     Dates: start: 202305

REACTIONS (1)
  - Spinal operation [None]
